FAERS Safety Report 10488644 (Version 1)
Quarter: 2014Q4

REPORT INFORMATION
  Report Type: Spontaneous
  Country: US (occurrence: None)
  Receive Date: 20141001
  Receipt Date: 20141001
  Transmission Date: 20150528
  Serious: Yes (Disabling)
  Sender: FDA-Public Use
  Company Number: None

PATIENT
  Age: 18 Year
  Sex: Female
  Weight: 58.97 kg

DRUGS (3)
  1. BUPRENORPHINE WITH NALOXONE [Suspect]
     Active Substance: BUPRENORPHINE\NALOXONE
     Indication: DRUG DEPENDENCE
     Dosage: 8/2 MG TAB ?2 1/2 DAILY?SUBLINGUALLY
     Route: 060
     Dates: start: 20140614
  2. XANAX [Concomitant]
     Active Substance: ALPRAZOLAM
  3. BUPRENORPHINE WITH NALOXONE 8/2 MG AMNEA L. [Suspect]
     Active Substance: BUPRENORPHINE\NALOXONE
     Dosage: 8/2 MG TAB ?2 1/2 DAILY?SUBLINGUALLY
     Route: 060

REACTIONS (12)
  - Malaise [None]
  - Product formulation issue [None]
  - Panic attack [None]
  - Drug withdrawal syndrome [None]
  - Drug dependence [None]
  - Nausea [None]
  - Anxiety [None]
  - Emotional distress [None]
  - Drug intolerance [None]
  - Muscle spasms [None]
  - Activities of daily living impaired [None]
  - Educational problem [None]

NARRATIVE: CASE EVENT DATE: 20140614
